FAERS Safety Report 25062190 (Version 1)
Quarter: 2025Q1

REPORT INFORMATION
  Report Type: Spontaneous
  Country: US (occurrence: US)
  Receive Date: 20250311
  Receipt Date: 20250311
  Transmission Date: 20250408
  Serious: Yes (Other)
  Sender: ALEXION PHARMACEUTICALS
  Company Number: US-AstraZeneca-CH-00821396AP

PATIENT
  Age: 70 Year

DRUGS (1)
  1. BUDESONIDE\FORMOTEROL FUMARATE [Suspect]
     Active Substance: BUDESONIDE\FORMOTEROL FUMARATE
     Route: 065

REACTIONS (6)
  - Pulmonary congestion [Unknown]
  - Bronchiectasis [Unknown]
  - Product dose omission issue [Unknown]
  - Product physical issue [Unknown]
  - Product packaging issue [Unknown]
  - Device delivery system issue [Unknown]
